FAERS Safety Report 11456105 (Version 1)
Quarter: 2015Q3

REPORT INFORMATION
  Report Type: Spontaneous
  Country: US (occurrence: US)
  Receive Date: 20150903
  Receipt Date: 20150903
  Transmission Date: 20151125
  Serious: Yes (Other)
  Sender: FDA-Public Use
  Company Number: US-FRESENIUS KABI-FK201504163

PATIENT
  Age: 24 Year
  Sex: Male

DRUGS (5)
  1. PYRIDOXINE INJECTION (MANUFACTURER UNKNOWN) [Suspect]
     Active Substance: PYRIDOXINE
  2. PYRIDOXINE INJECTION (MANUFACTURER UNKNOWN) [Suspect]
     Active Substance: PYRIDOXINE
     Route: 065
  3. METHYLPREDNISOLONE (MANUFACTURER UNKNOWN) [Suspect]
     Active Substance: METHYLPREDNISOLONE
     Indication: INFLAMMATION
     Route: 065
  4. PYRIDOXINE INJECTION (MANUFACTURER UNKNOWN) [Suspect]
     Active Substance: PYRIDOXINE
     Indication: HYPEROXALURIA
     Route: 065
  5. PYRIDOXINE INJECTION (MANUFACTURER UNKNOWN) [Suspect]
     Active Substance: PYRIDOXINE
     Route: 065

REACTIONS (5)
  - Nerve injury [Recovering/Resolving]
  - Renal transplant [None]
  - Liver transplant [None]
  - Acute polyneuropathy [Not Recovered/Not Resolved]
  - Toxicity to various agents [Recovered/Resolved]
